FAERS Safety Report 16109200 (Version 1)
Quarter: 2019Q1

REPORT INFORMATION
  Report Type: Spontaneous
  Country: US (occurrence: US)
  Receive Date: 20190323
  Receipt Date: 20190323
  Transmission Date: 20190418
  Serious: No
  Sender: FDA-Public Use
  Company Number: US-THERAPEUTICSMD-2018TMD00439

PATIENT
  Age: 81 Year
  Sex: Female
  Weight: 46.71 kg

DRUGS (3)
  1. IMVEXXY [Suspect]
     Active Substance: ESTRADIOL
     Indication: VULVOVAGINAL DRYNESS
     Dosage: UNK
     Dates: start: 20190312
  2. IMVEXXY [Suspect]
     Active Substance: ESTRADIOL
     Indication: PAPILLOMA VIRAL INFECTION
     Dosage: 4 ?G, 2X/WEEK BEFORE BED
     Route: 067
     Dates: start: 201811, end: 2018
  3. IMVEXXY [Suspect]
     Active Substance: ESTRADIOL
     Indication: OESTROGEN DEFICIENCY
     Dosage: 4 ?G, 1X/WEEK
     Route: 067
     Dates: start: 2018, end: 20181217

REACTIONS (6)
  - Dysphonia [Unknown]
  - Abdominal distension [Unknown]
  - Off label use [Not Recovered/Not Resolved]
  - Nausea [Not Recovered/Not Resolved]
  - Throat irritation [Unknown]
  - Presyncope [Unknown]

NARRATIVE: CASE EVENT DATE: 2018
